FAERS Safety Report 14302969 (Version 2)
Quarter: 2018Q1

REPORT INFORMATION
  Report Type: Report from Study
  Country: US (occurrence: US)
  Receive Date: 20171219
  Receipt Date: 20180301
  Transmission Date: 20180509
  Serious: Yes (Death)
  Sender: FDA-Public Use
  Company Number: US-RETROPHIN, INC.-2017RTN00126

PATIENT
  Age: 0 Year
  Sex: Male
  Weight: 6 kg

DRUGS (11)
  1. CHOLIC ACID [Suspect]
     Active Substance: CHOLIC ACID
     Indication: CEREBROHEPATORENAL SYNDROME
     Dosage: 50 MG, 2X/DAY
     Dates: start: 20171130
  2. SODIUM CHLORIDE. [Concomitant]
     Active Substance: SODIUM CHLORIDE
     Dosage: 1 DOSAGE UNITS, 3X/DAY FOR SHORTNESS OF BREATH
     Route: 055
  3. PULMOZYME [Concomitant]
     Active Substance: DORNASE ALFA
     Dosage: 0.25 ML, 1X/DAY EVERY MORNING FOR EXCESS SECRETIONS
     Route: 055
  4. ATIVAN INTENSOL [Concomitant]
     Dosage: 0.3 ML, EVERY 1 HOUR AS NEEDED FOR SEIZURES
     Route: 048
  5. RANITIDINE. [Concomitant]
     Active Substance: RANITIDINE
     Dosage: 0.8 ML, 2X/DAY FOR GERD
     Route: 048
  6. SODIUM CHLORIDE. [Concomitant]
     Active Substance: SODIUM CHLORIDE
     Dosage: 1 DOSAGE UNITS, EVERY 4 HOURS FOR CONGESTION
     Route: 055
  7. HYTONE [Concomitant]
     Active Substance: HYDROCORTISONE
  8. KEPPRA 100 SOL [Concomitant]
     Dosage: 1.5 ML, EVERY 8 HOURS FOR SEIZURES
     Route: 048
  9. ATROVENT NEBS [Concomitant]
     Dosage: 1 DOSAGE UNITS, EVERY 8 HOURS AS NEEDED FOR SHORTNESS OF BREATH
     Route: 055
  10. ATIVAN INTENSOL [Concomitant]
     Dosage: 0.15 ML, EVERY 8 HOURS FOR SEIZURES
     Route: 048
  11. PHENOBARBITAL. [Concomitant]
     Active Substance: PHENOBARBITAL
     Dosage: 17 MG, EVERY 8 HOURS FOR SEIZURES
     Route: 048

REACTIONS (4)
  - Heart rate increased [Unknown]
  - Multiple organ dysfunction syndrome [Fatal]
  - Abdominal pain [Unknown]
  - Crying [Unknown]

NARRATIVE: CASE EVENT DATE: 2017
